FAERS Safety Report 15540671 (Version 2)
Quarter: 2018Q4

REPORT INFORMATION
  Report Type: Spontaneous
  Country: US (occurrence: US)
  Receive Date: 20181023
  Receipt Date: 20181220
  Transmission Date: 20190205
  Serious: No
  Sender: FDA-Public Use
  Company Number: US-GLENMARK PHARMACEUTICALS-2018GMK037200

PATIENT

DRUGS (7)
  1. TELMISARTAN TABLETS [Suspect]
     Active Substance: TELMISARTAN
     Dosage: UNK (WHOLE TABLET)
     Route: 048
  2. TELMISARTAN TABLETS [Suspect]
     Active Substance: TELMISARTAN
     Indication: BLOOD PRESSURE MANAGEMENT
     Dosage: 20 MG, BID
     Route: 048
  3. TELMISARTAN TABLETS [Suspect]
     Active Substance: TELMISARTAN
     Dosage: UNK, PRN
     Route: 048
  4. ATENOLOL. [Concomitant]
     Active Substance: ATENOLOL
     Indication: HYPERTENSION
     Dosage: 25 MG, QD
     Route: 065
  5. MICARDIS [Concomitant]
     Active Substance: TELMISARTAN
     Indication: HYPERTENSION
     Dosage: 25 MG, QD
     Route: 065
  6. ALPRAZOLAM. [Concomitant]
     Active Substance: ALPRAZOLAM
     Indication: ANXIETY
     Dosage: 0.25 MG FIVE TIME DAILY
     Route: 065
  7. TELMISARTAN TABLETS [Suspect]
     Active Substance: TELMISARTAN
     Dosage: 2 OR 3 TIMES A DAY (HALF TABLET)
     Route: 048

REACTIONS (6)
  - Sinusitis [Not Recovered/Not Resolved]
  - Incorrect dose administered [Unknown]
  - Inappropriate schedule of product administration [Unknown]
  - Drug ineffective [Unknown]
  - Bloody discharge [Recovering/Resolving]
  - Nasal discharge discolouration [Recovering/Resolving]

NARRATIVE: CASE EVENT DATE: 201801
